FAERS Safety Report 5201841-3 (Version None)
Quarter: 2006Q4

REPORT INFORMATION
  Report Type: 
  Country: None (occurrence: None)
  Receive Date: 20061003
  Receipt Date: 20060615
  Transmission Date: 20070319
  Serious: No
  Sender: FDA-Public Use
  Company Number: 2006-0009742

PATIENT
  Sex: Male

DRUGS (3)
  1. TRUVADA [Suspect]
     Indication: HIV INFECTION
  2. EMTRICITABINE (EMTRICITABINE) [Suspect]
  3. EFAVIRENZ [Concomitant]

REACTIONS (15)
  - ABDOMINAL PAIN UPPER [None]
  - ASTHENIA [None]
  - CHROMATURIA [None]
  - CONDITION AGGRAVATED [None]
  - CONSTIPATION [None]
  - DECREASED APPETITE [None]
  - DIZZINESS [None]
  - FAECES DISCOLOURED [None]
  - FAECES PALE [None]
  - FATIGUE [None]
  - FEELING COLD [None]
  - NAUSEA [None]
  - PERIPHERAL COLDNESS [None]
  - POLLAKIURIA [None]
  - URINE OUTPUT INCREASED [None]
